FAERS Safety Report 4830578-5 (Version None)
Quarter: 2005Q4

REPORT INFORMATION
  Report Type: 
  Country: None (occurrence: None)
  Receive Date: 20051115
  Receipt Date: 20051103
  Transmission Date: 20060501
  Serious: Yes (Life-Threatening, Hospitalization)
  Sender: FDA-Public Use
  Company Number: 2005139012

PATIENT
  Age: 15 Year
  Sex: Female

DRUGS (9)
  1. VFEND [Suspect]
     Indication: ASPERGILLOSIS
     Dosage: 600 MG (300 MG, 2 IN 1 D), INTRAVENOUS
     Route: 042
     Dates: start: 20050911, end: 20050929
  2. POSACONAZOLE [Suspect]
     Indication: ASPERGILLOSIS
     Dosage: 200 MG/KG, ORAL
     Route: 048
     Dates: start: 20050930, end: 20050930
  3. IMIDAZOLE SALICYLATE (IMIDAZOLE SALICYLATE) [Suspect]
     Indication: ILL-DEFINED DISORDER
  4. OMEPRAZOLE [Suspect]
     Indication: NAUSEA
     Dosage: ORAL
     Route: 048
     Dates: start: 20050917
  5. OMEPRAZOLE [Suspect]
     Indication: VOMITING
     Dosage: ORAL
     Route: 048
     Dates: start: 20050917
  6. AMBISOME [Concomitant]
  7. CANCIDAS [Concomitant]
  8. MYCOSTATIN [Concomitant]
  9. AMPHOTERICIN B [Concomitant]

REACTIONS (17)
  - ANXIETY [None]
  - CARDIAC ARREST [None]
  - CHEST DISCOMFORT [None]
  - DRUG INTERACTION [None]
  - DYSPNOEA [None]
  - ELECTROCARDIOGRAM QT PROLONGED [None]
  - HYPOMAGNESAEMIA [None]
  - MALAISE [None]
  - MUCORMYCOSIS [None]
  - PALLOR [None]
  - PYREXIA [None]
  - SHOCK [None]
  - TACHYCARDIA [None]
  - THROMBOCYTOPENIA [None]
  - TORSADE DE POINTES [None]
  - VENTRICULAR FIBRILLATION [None]
  - VOMITING [None]
